FAERS Safety Report 8508210-9 (Version None)
Quarter: 2012Q2

REPORT INFORMATION
  Report Type: 
  Country: None (occurrence: None)
  Receive Date: 20120405
  Receipt Date: 20080807
  Transmission Date: 20120825
  Serious: Yes (Other)
  Sender: FDA-Public Use
  Company Number: PHEH2008US04848

PATIENT
  Age: 67 Year
  Sex: Female
  Weight: 75.3 kg

DRUGS (6)
  1. LISINOPRIL [Concomitant]
  2. NORVASC [Concomitant]
  3. LISINOPRIL [Concomitant]
  4. LORAZEPAM [Concomitant]
  5. RECLAST [Suspect]
     Indication: OSTEOPOROSIS
     Dosage: 5 MG, ONCE YEARLY, INFUSION
     Dates: start: 20080508
  6. ZOCOR [Concomitant]

REACTIONS (10)
  - ANGIOEDEMA [None]
  - RASH [None]
  - SWELLING [None]
  - MYALGIA [None]
  - JOINT SWELLING [None]
  - ASPARTATE AMINOTRANSFERASE INCREASED [None]
  - PAIN [None]
  - ALANINE AMINOTRANSFERASE INCREASED [None]
  - OEDEMA PERIPHERAL [None]
  - CHILLS [None]
